FAERS Safety Report 4810607-5 (Version None)
Quarter: 2005Q4

REPORT INFORMATION
  Report Type: 
  Country: None (occurrence: None)
  Receive Date: 20051024
  Receipt Date: 20051011
  Transmission Date: 20060501
  Serious: Yes (Hospitalization)
  Sender: FDA-Public Use
  Company Number: 2005119097

PATIENT
  Sex: Female
  Weight: 63.5036 kg

DRUGS (2)
  1. DETROL LA [Suspect]
     Indication: MICTURITION URGENCY
     Dosage: 4 MG (4 MG, 1 IN 1 D)
     Dates: start: 20010101, end: 20040101
  2. DETROL LA [Suspect]
     Indication: POLLAKIURIA
     Dosage: 4 MG (4 MG, 1 IN 1 D)
     Dates: start: 20010101, end: 20040101

REACTIONS (11)
  - BLADDER SPASM [None]
  - COMPLICATION OF PREGNANCY [None]
  - CONDITION AGGRAVATED [None]
  - CYSTITIS INTERSTITIAL [None]
  - DRUG EXPOSURE BEFORE PREGNANCY [None]
  - INFLAMMATION [None]
  - MUSCLE SPASMS [None]
  - PREGNANCY [None]
  - RENAL DISORDER [None]
  - URETERAL DISORDER [None]
  - URETERIC DILATATION [None]
